FAERS Safety Report 7134207-X (Version None)
Quarter: 2010Q4

REPORT INFORMATION
  Report Type: 
  Country: None (occurrence: None)
  Receive Date: 20101203
  Receipt Date: 20101125
  Transmission Date: 20110411
  Serious: No
  Sender: FDA-Public Use
  Company Number: BR-ASTRAZENECA-2010SE50532

PATIENT
  Age: 29 Year
  Sex: Male
  Weight: 95 kg

DRUGS (4)
  1. SEROQUEL [Suspect]
     Indication: BIPOLAR DISORDER
     Route: 048
     Dates: start: 20100901, end: 20100901
  2. SEROQUEL [Suspect]
     Route: 048
     Dates: start: 20100901, end: 20100901
  3. SEROQUEL [Suspect]
     Route: 048
     Dates: start: 20100901, end: 20101123
  4. LITHIUM [Concomitant]
     Route: 048
     Dates: start: 19960101

REACTIONS (13)
  - ASTHENIA [None]
  - BIPOLAR DISORDER [None]
  - BLOOD GLUCOSE INCREASED [None]
  - CONFUSIONAL STATE [None]
  - CONSTIPATION [None]
  - DECREASED APPETITE [None]
  - DRUG INEFFECTIVE [None]
  - DYSPNOEA [None]
  - HYPERTENSION [None]
  - INSOMNIA [None]
  - LIMB INJURY [None]
  - RESTLESSNESS [None]
  - WHITE BLOOD CELL COUNT DECREASED [None]
